FAERS Safety Report 16782945 (Version 1)
Quarter: 2019Q3

REPORT INFORMATION
  Report Type: Spontaneous
  Country: US (occurrence: US)
  Receive Date: 20190906
  Receipt Date: 20190906
  Transmission Date: 20191005
  Serious: No
  Sender: FDA-Public Use
  Company Number: US-ARRAY-2019-06259

PATIENT

DRUGS (4)
  1. MEKTOVI [Suspect]
     Active Substance: BINIMETINIB
     Dosage: 15
  2. MEKTOVI [Suspect]
     Active Substance: BINIMETINIB
     Indication: PRODUCT USED FOR UNKNOWN INDICATION
     Dosage: 30
     Dates: start: 2019, end: 2019
  3. BRAFTOVI [Suspect]
     Active Substance: ENCORAFENIB
     Indication: PRODUCT USED FOR UNKNOWN INDICATION
     Dosage: 300
     Dates: start: 2019, end: 2019
  4. BRAFTOVI [Suspect]
     Active Substance: ENCORAFENIB
     Dosage: 150
     Dates: start: 2019

REACTIONS (2)
  - Off label use [Unknown]
  - Erythema nodosum [Recovering/Resolving]
